FAERS Safety Report 5665114-7 (Version None)
Quarter: 2008Q1

REPORT INFORMATION
  Report Type: 
  Country: None (occurrence: None)
  Receive Date: 20080314
  Receipt Date: 20080304
  Transmission Date: 20080703
  Serious: Yes (Other)
  Sender: FDA-Public Use
  Company Number: US-PFIZER INC-2008021097

PATIENT
  Sex: Female
  Weight: 136.1 kg

DRUGS (8)
  1. CHANTIX [Suspect]
     Indication: OVERWEIGHT
     Route: 048
  2. CHANTIX [Suspect]
     Indication: HYPERTENSION
  3. CHANTIX [Suspect]
     Indication: DIABETES MELLITUS
  4. GLIPIZIDE [Concomitant]
     Indication: DIABETES MELLITUS
     Route: 048
  5. LISINOPRIL AND HYDROCHLOROTHIAZIDE [Concomitant]
     Route: 048
  6. LEVOTHROID [Concomitant]
     Indication: THYROID DISORDER
     Route: 048
  7. LIPITOR [Concomitant]
     Route: 048
  8. EFFEXOR [Concomitant]
     Route: 048

REACTIONS (3)
  - COUGH [None]
  - HAEMATEMESIS [None]
  - VOMITING [None]
